FAERS Safety Report 16798193 (Version 1)
Quarter: 2019Q4

REPORT INFORMATION
  Report Type: Spontaneous
  Country: US (occurrence: US)
  Receive Date: 20190911
  Receipt Date: 20190911
  Transmission Date: 20200122
  Serious: No
  Sender: FDA-Public Use
  Company Number: None

PATIENT
  Age: 76 Year
  Sex: Male
  Weight: 84.69 kg

DRUGS (1)
  1. CAPECITABINE. [Suspect]
     Active Substance: CAPECITABINE
     Dosage: 1500 MG ORAL BID 14 ON 7 OFF
     Route: 048
     Dates: start: 20190620, end: 20190911

REACTIONS (2)
  - Speech disorder [None]
  - Dysarthria [None]

NARRATIVE: CASE EVENT DATE: 20190828
